FAERS Safety Report 9198594 (Version 2)
Quarter: 2013Q2

REPORT INFORMATION
  Report Type: Spontaneous
  Country: US (occurrence: US)
  Receive Date: 20130329
  Receipt Date: 20130409
  Transmission Date: 20140414
  Serious: No
  Sender: FDA-Public Use
  Company Number: US-JNJFOC-20130305506

PATIENT
  Sex: Female
  Weight: 65.77 kg

DRUGS (4)
  1. FENTANYL TRANSDERMAL SYSTEM [Suspect]
     Indication: PAIN
     Route: 062
  2. ^SLEEPING PILLS^ [Concomitant]
     Indication: SLEEP DISORDER
     Route: 065
  3. SOLU MEDROL [Concomitant]
     Indication: PRODUCT USED FOR UNKNOWN INDICATION
     Route: 065
     Dates: start: 20010918
  4. EPINEPHRINE [Concomitant]
     Indication: PRODUCT USED FOR UNKNOWN INDICATION
     Route: 065
     Dates: start: 20010918

REACTIONS (2)
  - Drug diversion [Unknown]
  - Expired drug administered [Unknown]
